FAERS Safety Report 26140841 (Version 2)
Quarter: 2025Q4

REPORT INFORMATION
  Report Type: Spontaneous
  Country: US (occurrence: US)
  Receive Date: 20251210
  Receipt Date: 20251222
  Transmission Date: 20260117
  Serious: Yes (Other)
  Sender: PFIZER
  Company Number: US-PFIZER INC-PV202500143189

PATIENT
  Age: 42 Year
  Sex: Female

DRUGS (2)
  1. LEVOTHYROXINE SODIUM [Interacting]
     Active Substance: LEVOTHYROXINE SODIUM
     Indication: Hypothyroidism
     Dosage: 50 UG, DAILY
  2. ESTROGENS, CONJUGATED [Interacting]
     Active Substance: ESTROGENS, CONJUGATED
     Indication: Contraception
     Dosage: UNK (PILL)
     Route: 048

REACTIONS (2)
  - Drug interaction [Unknown]
  - Hyperthyroidism [Recovered/Resolved]
